FAERS Safety Report 5052439-1 (Version None)
Quarter: 2006Q3

REPORT INFORMATION
  Report Type: 
  Country: None (occurrence: None)
  Receive Date: 20060717
  Receipt Date: 20060630
  Transmission Date: 20061208
  Serious: Yes (Other)
  Sender: FDA-Public Use
  Company Number: PHBS2006BE10001

PATIENT
  Age: 50 Year
  Sex: Female

DRUGS (3)
  1. ZOMETA [Suspect]
     Indication: BREAST CANCER
     Dosage: UNK, UNK
     Route: 065
     Dates: end: 20060301
  2. CHEMOTHERAPEUTICS,OTHER [Concomitant]
     Route: 065
  3. CORTICOSTEROIDS [Concomitant]
     Route: 065

REACTIONS (2)
  - OSTEITIS [None]
  - OSTEONECROSIS [None]
